FAERS Safety Report 8956251 (Version 1)
Quarter: 2012Q4

REPORT INFORMATION
  Report Type: 
  Country: US (occurrence: US)
  Receive Date: 20121210
  Receipt Date: 20121210
  Transmission Date: 20130627
  Serious: Yes (Hospitalization)
  Sender: FDA-Public Use
  Company Number: US-BAYER-2012-127341

PATIENT
  Age: 32 Year
  Sex: Female
  Weight: 81.63 kg

DRUGS (4)
  1. YASMIN [Suspect]
     Indication: BIRTH CONTROL
  2. OCELLA [Suspect]
  3. TOPAMAX [Concomitant]
     Indication: MIGRAINE
  4. NORTRIPTYLINE [Concomitant]
     Indication: MIGRAINE PROPHYLAXIS

REACTIONS (1)
  - Pulmonary embolism [None]
